FAERS Safety Report 11923296 (Version 1)
Quarter: 2016Q1

REPORT INFORMATION
  Report Type: Spontaneous
  Country: US (occurrence: US)
  Receive Date: 20160118
  Receipt Date: 20160118
  Transmission Date: 20160526
  Serious: No
  Sender: FDA-Public Use
  Company Number: US-BRISTOL-MYERS SQUIBB COMPANY-BMS-2016-002039

PATIENT

DRUGS (5)
  1. ELIQUIS [Suspect]
     Active Substance: APIXABAN
     Dosage: 5 MG, QD
     Route: 065
  2. ELIQUIS [Suspect]
     Active Substance: APIXABAN
     Dosage: 2.5 MG, QD
     Route: 065
  3. ELIQUIS [Suspect]
     Active Substance: APIXABAN
     Dosage: 5 MG, BID
     Route: 065
     Dates: start: 201512
  4. ELIQUIS [Suspect]
     Active Substance: APIXABAN
     Indication: PRODUCT USED FOR UNKNOWN INDICATION
     Dosage: 5 MG, BID
     Route: 065
     Dates: start: 201503
  5. ELIQUIS [Suspect]
     Active Substance: APIXABAN
     Dosage: 2.5 MG, UNK
     Route: 065
     Dates: start: 201504

REACTIONS (1)
  - Adverse event [Unknown]
